FAERS Safety Report 9464592 (Version 1)
Quarter: 2013Q3

REPORT INFORMATION
  Report Type: Spontaneous
  Country: US (occurrence: US)
  Receive Date: 20130819
  Receipt Date: 20130819
  Transmission Date: 20140515
  Serious: No
  Sender: FDA-Public Use
  Company Number: US-PFIZER INC-2013238280

PATIENT
  Age: 64 Year
  Sex: Male
  Weight: 88.44 kg

DRUGS (14)
  1. XELJANZ [Suspect]
     Indication: RHEUMATOID ARTHRITIS
     Dosage: 5 MG, 2X/DAY
     Route: 048
  2. METHOTREXATE SODIUM [Suspect]
     Dosage: UNK
  3. FOLIC ACID [Suspect]
     Dosage: UNK
  4. CYMBALTA [Concomitant]
     Dosage: 20 MG, UNK
  5. AMBIEN [Concomitant]
     Dosage: 10 MG, UNK
  6. XANAX [Concomitant]
     Dosage: 0.5 MG, UNK
  7. FLUOXETINE [Concomitant]
     Dosage: 10 MG, UNK
  8. SIMVASTATIN [Concomitant]
     Dosage: 20 MG, UNK
  9. ASPIRIN [Concomitant]
     Dosage: 81 MG, UNK
  10. TAMSULOSIN [Concomitant]
     Dosage: 0.4 MG, UNK
  11. AVODART [Concomitant]
     Dosage: 0.5 MG, UNK
  12. PRILOSEC [Concomitant]
     Dosage: 20 MG, UNK
  13. FENOFIBRATE [Concomitant]
     Dosage: 43 MG, UNK
  14. OXYCODONE [Concomitant]
     Dosage: 10 MG, UNK

REACTIONS (1)
  - Muscle spasms [Unknown]
